FAERS Safety Report 16982759 (Version 5)
Quarter: 2020Q2

REPORT INFORMATION
  Report Type: Report from Study
  Country: US (occurrence: US)
  Receive Date: 20191101
  Receipt Date: 20200407
  Transmission Date: 20200713
  Serious: Yes (Hospitalization, Other)
  Sender: FDA-Public Use
  Company Number: US-ASTELLAS-2019US041611

PATIENT
  Age: 84 Year
  Sex: Male

DRUGS (2)
  1. ENZALUTAMIDE [Suspect]
     Active Substance: ENZALUTAMIDE
     Indication: HORMONE-REFRACTORY PROSTATE CANCER
     Route: 048
     Dates: start: 20191002
  2. ENZALUTAMIDE [Suspect]
     Active Substance: ENZALUTAMIDE
     Route: 048
     Dates: start: 20191007

REACTIONS (6)
  - Treatment noncompliance [Unknown]
  - Dizziness [Unknown]
  - Abdominal discomfort [Not Recovered/Not Resolved]
  - Internal haemorrhage [Unknown]
  - Inappropriate schedule of product administration [Unknown]
  - Intestinal obstruction [Unknown]

NARRATIVE: CASE EVENT DATE: 201910
